FAERS Safety Report 7590099-6 (Version None)
Quarter: 2011Q3

REPORT INFORMATION
  Report Type: 
  Country: None (occurrence: None)
  Receive Date: 20110705
  Receipt Date: 20110624
  Transmission Date: 20111222
  Serious: Yes (Other)
  Sender: FDA-Public Use
  Company Number: B0728408A

PATIENT
  Age: 90 Year
  Sex: Female

DRUGS (6)
  1. QUININE SULFATE [Concomitant]
  2. POLYETHYLENE GLYCOL [Concomitant]
  3. MIRTAZAPINE [Concomitant]
  4. ACETAMINOPHEN [Concomitant]
  5. SENNA [Concomitant]
  6. LAMOTRIGINE [Suspect]
     Indication: EPILEPSY
     Dosage: 125MG PER DAY
     Route: 048

REACTIONS (4)
  - LEUKOPENIA [None]
  - NEUTROPENIA [None]
  - PNEUMONIA [None]
  - RENAL IMPAIRMENT [None]
